FAERS Safety Report 5188245-7 (Version None)
Quarter: 2006Q4

REPORT INFORMATION
  Report Type: 
  Country: None (occurrence: None)
  Receive Date: 20061221
  Receipt Date: 20061218
  Transmission Date: 20070319
  Serious: Yes (Other)
  Sender: FDA-Public Use
  Company Number: US-GLAXOSMITHKLINE-A0631925A

PATIENT
  Age: 51 Year
  Sex: Female

DRUGS (4)
  1. LAMICTAL [Suspect]
     Indication: COMPLEX PARTIAL SEIZURES
     Dosage: 200MG PER DAY
     Route: 048
     Dates: start: 20030501
  2. LEVOTHYROXINE SODIUM [Concomitant]
  3. MIGQUIN [Concomitant]
  4. DURADRIN [Concomitant]

REACTIONS (6)
  - AMNESIA [None]
  - BALANCE DISORDER [None]
  - CONVULSION [None]
  - ECONOMIC PROBLEM [None]
  - MIGRAINE [None]
  - VISUAL DISTURBANCE [None]
